FAERS Safety Report 12458049 (Version 2)
Quarter: 2016Q3

REPORT INFORMATION
  Report Type: Spontaneous
  Country: US (occurrence: US)
  Receive Date: 20160612
  Receipt Date: 20160712
  Transmission Date: 20161109
  Serious: No
  Sender: FDA-Public Use
  Company Number: US-BIOGEN-2016BI00244582

PATIENT
  Sex: Female

DRUGS (1)
  1. TYSABRI [Suspect]
     Active Substance: NATALIZUMAB
     Indication: MULTIPLE SCLEROSIS
     Dosage: INFUSED OVER 1 HOUR
     Route: 065
     Dates: start: 20130920

REACTIONS (8)
  - Abasia [Not Recovered/Not Resolved]
  - Asthenia [Recovered/Resolved]
  - Hemianaesthesia [Not Recovered/Not Resolved]
  - Hypoaesthesia [Recovered/Resolved]
  - Drug dose omission [Not Recovered/Not Resolved]
  - Fatigue [Recovered/Resolved]
  - Optic neuritis [Not Recovered/Not Resolved]
  - Paraesthesia [Recovered/Resolved]
